FAERS Safety Report 6895813-0 (Version None)
Quarter: 2010Q3

REPORT INFORMATION
  Report Type: 
  Country: None (occurrence: None)
  Receive Date: 20100728
  Receipt Date: 20100715
  Transmission Date: 20110219
  Serious: Yes (Hospitalization)
  Sender: FDA-Public Use
  Company Number: UTC-001253

PATIENT
  Age: 45 Year
  Sex: Female

DRUGS (6)
  1. REMODULIN [Suspect]
     Dosage: 123.84 UG/KG (0.086 UG/KG, 1 IN 1 MIN), SUBCUTANEOUS
     Route: 058
     Dates: start: 20061121
  2. LASIX [Concomitant]
  3. REVATIO [Concomitant]
  4. METFORMIN HCL [Concomitant]
  5. SPIRONOLACTONE [Concomitant]
  6. CELEXA [Concomitant]

REACTIONS (1)
  - FLUID RETENTION [None]
